FAERS Safety Report 8293697-X (Version None)
Quarter: 2012Q2

REPORT INFORMATION
  Report Type: 
  Country: None (occurrence: None)
  Receive Date: 20120418
  Receipt Date: 20120404
  Transmission Date: 20120825
  Serious: Yes (Hospitalization)
  Sender: FDA-Public Use
  Company Number: SE-AMGEN-SWECT2012017385

PATIENT
  Age: 73 Year
  Sex: Female

DRUGS (3)
  1. ETANERCEPT [Suspect]
     Indication: RHEUMATOID ARTHRITIS
     Dosage: 50 MG, WEEKLY
     Route: 058
     Dates: start: 20100323
  2. NSAID'S [Concomitant]
     Dosage: UNK
     Dates: start: 20100323
  3. METHOTREXATE [Concomitant]
     Dosage: 15 MG, UNK
     Dates: start: 20100323

REACTIONS (1)
  - FUNCTIONAL GASTROINTESTINAL DISORDER [None]
